FAERS Safety Report 17670167 (Version 1)
Quarter: 2020Q2

REPORT INFORMATION
  Report Type: Spontaneous
  Country: DK (occurrence: DK)
  Receive Date: 20200415
  Receipt Date: 20200415
  Transmission Date: 20200713
  Serious: Yes (Other)
  Sender: FDA-Public Use
  Company Number: NVSC2020DK100256

PATIENT
  Age: 80 Year
  Sex: Male

DRUGS (12)
  1. CLOPIDOGREL [Concomitant]
     Active Substance: CLOPIDOGREL BISULFATE
     Indication: THROMBOSIS PROPHYLAXIS
     Dosage: 75 MG, QD
     Route: 048
     Dates: start: 20180614
  2. CETIRIZINE [Concomitant]
     Active Substance: CETIRIZINE HYDROCHLORIDE
     Indication: PRURITUS
     Dosage: STYRKE: 10 MG
     Route: 048
     Dates: start: 20190214, end: 20191227
  3. VISCOTEARS [Concomitant]
     Active Substance: CARBOMER
     Indication: PRODUCT USED FOR UNKNOWN INDICATION
     Dosage: 2 MG/G, PRN (1 DROP)
     Route: 050
     Dates: start: 20180913
  4. AZATHIOPRINE. [Concomitant]
     Active Substance: AZATHIOPRINE
     Indication: RENAL DISORDER
     Dosage: 50 MG, QD
     Route: 048
     Dates: start: 20180627
  5. FUROSEMIDE. [Concomitant]
     Active Substance: FUROSEMIDE
     Indication: DIURETIC THERAPY
     Dosage: 20 MG, QD
     Route: 048
     Dates: start: 20180216
  6. ATORVASTATIN [Concomitant]
     Active Substance: ATORVASTATIN
     Indication: CARDIOVASCULAR DISORDER
     Dosage: 80 MG, QD
     Route: 048
     Dates: start: 20180322
  7. POTASSIUM CHLORIDE. [Concomitant]
     Active Substance: POTASSIUM CHLORIDE
     Indication: SUPPLEMENTATION THERAPY
     Dosage: 750 MG, QD
     Route: 048
     Dates: start: 20180216
  8. PARACETAMOL [Concomitant]
     Active Substance: ACETAMINOPHEN
     Indication: PAIN
     Dosage: 1000 MG, PRN
     Route: 048
     Dates: start: 20180201
  9. CODEINE [Concomitant]
     Active Substance: CODEINE
     Indication: PAIN
     Dosage: 25 MG
     Route: 048
     Dates: start: 20180827, end: 20191227
  10. PANTOPRAZOL SANDOZ [Suspect]
     Active Substance: PANTOPRAZOLE SODIUM
     Indication: GASTROOESOPHAGEAL REFLUX DISEASE
     Dosage: 80 MG, QD
     Route: 048
     Dates: start: 20180614
  11. LOSARTAN. [Concomitant]
     Active Substance: LOSARTAN
     Indication: HYPERTENSION
     Dosage: 50 MG, QD
     Route: 048
     Dates: start: 20181108
  12. DOLOPROCT [Concomitant]
     Active Substance: FLUOCORTOLONE PIVALATE\LIDOCAINE HYDROCHLORIDE
     Indication: HAEMORRHOIDS
     Dosage: 2 DF, QD
     Route: 054
     Dates: start: 20130510, end: 20191227

REACTIONS (1)
  - Osteoporotic fracture [Not Recovered/Not Resolved]

NARRATIVE: CASE EVENT DATE: 20191218
